FAERS Safety Report 8337655-5 (Version None)
Quarter: 2012Q2

REPORT INFORMATION
  Report Type: 
  Country: None (occurrence: None)
  Receive Date: 20120504
  Receipt Date: 20120504
  Transmission Date: 20120825
  Serious: Yes (Life-Threatening)
  Sender: FDA-Public Use
  Company Number: None

PATIENT
  Age: 62 Year
  Sex: Female
  Weight: 87 kg

DRUGS (3)
  1. LABETALOL HCL [Concomitant]
     Route: 042
  2. ALTEPLASE [Suspect]
     Indication: ISCHAEMIC STROKE
     Dosage: |DOSAGETEXT: 8 MG||STRENGTH: 100 MG||FREQ: ONCE||ROUTE: INTRAVENOUS BOLUS|
     Route: 040
     Dates: start: 20120501, end: 20120501
  3. ALTEPLASE [Suspect]
     Dosage: |DOSAGETEXT: 72 MG||STRENGTH: 100 MG||FREQ: ONCE||ROUTE: INTRAVENOUS DRIP|
     Route: 041

REACTIONS (1)
  - DRUG HYPERSENSITIVITY [None]
